FAERS Safety Report 5339934-2 (Version None)
Quarter: 2007Q2

REPORT INFORMATION
  Report Type: 
  Country: None (occurrence: None)
  Receive Date: 20070529
  Receipt Date: 20070514
  Transmission Date: 20071010
  Serious: Yes (Life-Threatening, Other)
  Sender: FDA-Public Use
  Company Number: 440001E06USA

PATIENT
  Age: 46 Year
  Sex: Male
  Weight: 63.8 kg

DRUGS (14)
  1. SEROSTIM [Suspect]
     Indication: IMMUNE RECONSTITUTION SYNDROME
     Dosage: SEE IMAGE
     Route: 058
     Dates: start: 20050413, end: 20051017
  2. SEROSTIM [Suspect]
     Indication: IMMUNE RECONSTITUTION SYNDROME
     Dosage: SEE IMAGE
     Route: 058
     Dates: start: 20051018, end: 20060406
  3. TENOFOVIR [Concomitant]
  4. LAMIVUDINE [Concomitant]
  5. EFAVIRENZ [Concomitant]
  6. NELFINAVIR [Concomitant]
  7. BACTRIM [Concomitant]
  8. GABAPENTIN [Concomitant]
  9. LOPERAMIDE HCL [Concomitant]
  10. M.V.I. [Concomitant]
  11. CLOTRIMAZOLE [Concomitant]
  12. BUPROPION HYDROCHLORIDE [Concomitant]
  13. BENADRYL [Concomitant]
  14. NAPROXEN [Concomitant]

REACTIONS (2)
  - LYMPHOMA [None]
  - UNEVALUABLE EVENT [None]
